FAERS Safety Report 5529539-2 (Version None)
Quarter: 2007Q4

REPORT INFORMATION
  Report Type: 
  Country: None (occurrence: None)
  Receive Date: 20071129
  Receipt Date: 20071123
  Transmission Date: 20080405
  Serious: Yes (Other)
  Sender: FDA-Public Use
  Company Number: FR-PFIZER INC-2007099034

PATIENT
  Sex: Male

DRUGS (1)
  1. TAHOR [Suspect]

REACTIONS (1)
  - DIABETES MELLITUS [None]
